FAERS Safety Report 15527100 (Version 1)
Quarter: 2018Q4

REPORT INFORMATION
  Report Type: Spontaneous
  Country: US (occurrence: US)
  Receive Date: 20181018
  Receipt Date: 20181018
  Transmission Date: 20190205
  Serious: No
  Sender: FDA-Public Use
  Company Number: US-ROMARKLABS-2018-US-000085

PATIENT
  Age: 46 Year
  Sex: Female

DRUGS (4)
  1. SACCHAROMYCES BOULARDII [Concomitant]
     Active Substance: SACCHAROMYCES CEREVISIAE
     Indication: LYME DISEASE
     Route: 048
  2. BIAXIN [Concomitant]
     Active Substance: CLARITHROMYCIN
     Indication: LYME DISEASE
     Route: 048
     Dates: start: 20180409
  3. CELEBREX [Concomitant]
     Active Substance: CELECOXIB
     Indication: PAIN
     Route: 048
  4. ALINIA [Suspect]
     Active Substance: NITAZOXANIDE
     Indication: LYME DISEASE
     Dosage: 1 TABLET TWICE DAILY
     Route: 048
     Dates: start: 20180409

REACTIONS (4)
  - Dysuria [Recovering/Resolving]
  - Pollakiuria [Recovering/Resolving]
  - Bladder pain [Recovering/Resolving]
  - Chromaturia [Unknown]

NARRATIVE: CASE EVENT DATE: 20180409
